FAERS Safety Report 7547617-3 (Version None)
Quarter: 2011Q2

REPORT INFORMATION
  Report Type: 
  Country: None (occurrence: None)
  Receive Date: 20110614
  Receipt Date: 20110607
  Transmission Date: 20111010
  Serious: Yes (Hospitalization)
  Sender: FDA-Public Use
  Company Number: JP-ALLERGAN-1107831US

PATIENT
  Age: 5 Year
  Sex: Male

DRUGS (1)
  1. BOTOX [Suspect]
     Indication: TORTICOLLIS
     Dosage: 50 UNITS, SINGLE
     Route: 030
     Dates: start: 20110530, end: 20110530

REACTIONS (2)
  - PNEUMONIA ASPIRATION [None]
  - PYREXIA [None]
